FAERS Safety Report 21579647 (Version 1)
Quarter: 2022Q4

REPORT INFORMATION
  Report Type: Spontaneous
  Country: US (occurrence: None)
  Receive Date: 20221110
  Receipt Date: 20221110
  Transmission Date: 20230113
  Serious: Yes (Other)
  Sender: FDA-Public Use
  Company Number: None

PATIENT
  Age: 28 Year
  Sex: Female
  Weight: 117.93 kg

DRUGS (4)
  1. KYLEENA [Suspect]
     Active Substance: LEVONORGESTREL
  2. Zolott 150mg once a day [Concomitant]
  3. Prenatals and 5-12 [Concomitant]
  4. VITAMIN D [Concomitant]
     Active Substance: VITAMIN D NOS

REACTIONS (4)
  - Embedded device [None]
  - Pregnancy with contraceptive device [None]
  - Exposure during pregnancy [None]
  - Pain [None]

NARRATIVE: CASE EVENT DATE: 20221108
